FAERS Safety Report 6529125-1 (Version None)
Quarter: 2009Q4

REPORT INFORMATION
  Report Type: 
  Country: None (occurrence: None)
  Receive Date: 20091224
  Receipt Date: 20091221
  Transmission Date: 20100525
  Serious: Yes (Other)
  Sender: FDA-Public Use
  Company Number: DE-1170590

PATIENT
  Age: 67 Year
  Sex: Male

DRUGS (12)
  1. FLUORESCITE [Suspect]
     Dosage: INTRAVENOUS BOLUS
     Route: 040
  2. HUMALOG [Concomitant]
  3. INSULIN B BRAUN RATIOPHARM (INSULIN HUMAN) [Concomitant]
  4. ESPA LIPON (THIOCTIC ACID) [Concomitant]
  5. SIMVABETA (SIMVASTATIN) [Concomitant]
  6. BISOPROLOL CT (BISOPROLOL FUMARATE) [Concomitant]
  7. ALPHAGAN (BRIMONIDINE) [Concomitant]
  8. TRAVATAN [Concomitant]
  9. AMLODIPINE [Concomitant]
  10. RAMIPRIL [Concomitant]
  11. HYDROCHLOROTHIAZIDE [Concomitant]
  12. THYRONAJOD (JODTHYROX) [Concomitant]

REACTIONS (5)
  - BLOOD PRESSURE DECREASED [None]
  - DIZZINESS [None]
  - ERYTHEMA [None]
  - FLUSHING [None]
  - LOSS OF CONSCIOUSNESS [None]
